FAERS Safety Report 10688775 (Version 1)
Quarter: 2015Q1

REPORT INFORMATION
  Report Type: Spontaneous
  Country: GB (occurrence: GB)
  Receive Date: 20150103
  Receipt Date: 20150103
  Transmission Date: 20150720
  Serious: Yes (Other)
  Sender: FDA-Public Use
  Company Number: GB-AUROBINDO-AUR-APL-2014-13417

PATIENT
  Age: 32 Year
  Sex: Male
  Weight: 85.72 kg

DRUGS (2)
  1. CITALOPRAM [Suspect]
     Active Substance: CITALOPRAM HYDROBROMIDE
     Indication: DEPRESSION
     Dosage: 20 MG, UNK
     Route: 048
     Dates: start: 20140717
  2. PROPRANOLOL [Concomitant]
     Active Substance: PROPRANOLOL\PROPRANOLOL HYDROCHLORIDE
     Indication: PRODUCT USED FOR UNKNOWN INDICATION
     Dosage: UNK
     Route: 065

REACTIONS (8)
  - Hypomania [Unknown]
  - Irritability [Unknown]
  - Thinking abnormal [Unknown]
  - Compulsive shopping [Unknown]
  - Restlessness [Unknown]
  - Anger [Unknown]
  - Elevated mood [Unknown]
  - Overconfidence [Unknown]
